FAERS Safety Report 4702194-7 (Version None)
Quarter: 2005Q2

REPORT INFORMATION
  Report Type: 
  Country: None (occurrence: None)
  Receive Date: 20050628
  Receipt Date: 20050628
  Transmission Date: 20051028
  Serious: Yes (Life-Threatening, Hospitalization)
  Sender: FDA-Public Use
  Company Number: None

PATIENT
  Sex: Male

DRUGS (8)
  1. AZITHROMYCIN [Suspect]
     Indication: SINUSITIS
     Dates: start: 20050617, end: 20050620
  2. CRIXIVAN [Concomitant]
  3. MEGACE [Concomitant]
  4. COMBIVIR [Concomitant]
  5. COUMADIN [Concomitant]
  6. METHADOME [Concomitant]
  7. INSULIN [Concomitant]
  8. FLUCONAZOLE [Concomitant]

REACTIONS (5)
  - CARDIAC ARREST [None]
  - ELECTROCARDIOGRAM QT CORRECTED INTERVAL PROLONGED [None]
  - SYNCOPE [None]
  - TORSADE DE POINTES [None]
  - VENTRICULAR TACHYCARDIA [None]
